FAERS Safety Report 4360287-0 (Version None)
Quarter: 2004Q2

REPORT INFORMATION
  Report Type: 
  Country: None (occurrence: None)
  Receive Date: 20040518
  Receipt Date: 20040518
  Transmission Date: 20050107
  Serious: Yes (Other)
  Sender: FDA-Public Use
  Company Number: None

PATIENT
  Age: 56 Year
  Sex: Female
  Weight: 47.7 kg

DRUGS (1)
  1. MIDAZOLAM 5MG X 1 DOSE [Suspect]
     Indication: SEDATION
     Dosage: 5MG IV
     Route: 042
     Dates: start: 20040122

REACTIONS (2)
  - CARDIO-RESPIRATORY ARREST [None]
  - MEDICATION ERROR [None]
